FAERS Safety Report 23196829 (Version 7)
Quarter: 2023Q4

REPORT INFORMATION
  Report Type: Spontaneous
  Country: DE (occurrence: DE)
  Receive Date: 20231117
  Receipt Date: 20231218
  Transmission Date: 20240109
  Serious: Yes (Other)
  Sender: FDA-Public Use
  Company Number: DE-PFIZER INC-202300360145

PATIENT
  Age: 91 Year
  Sex: Male

DRUGS (7)
  1. TAFAMIDIS [Suspect]
     Active Substance: TAFAMIDIS
     Indication: Cardiac amyloidosis
     Dosage: 61 MG
     Dates: start: 2020
  2. APIXABAN [Suspect]
     Active Substance: APIXABAN
     Indication: Atrial fibrillation
     Dosage: 2.5 MG, 2X/DAY (1-0-1)
  3. TORSEMIDE [Concomitant]
     Active Substance: TORSEMIDE
     Dosage: UNK
  4. EPLERENONE [Concomitant]
     Active Substance: EPLERENONE
     Dosage: UNK
  5. DAPAGLIFLOZIN [Concomitant]
     Active Substance: DAPAGLIFLOZIN
     Dosage: UNK
  6. NALOXONE HYDROCHLORIDE\TILIDINE HYDROCHLORIDE [Concomitant]
     Active Substance: NALOXONE HYDROCHLORIDE\TILIDINE HYDROCHLORIDE
     Dosage: UNK
  7. METAMIZOLE [Concomitant]
     Active Substance: METAMIZOLE
     Dosage: UNK

REACTIONS (9)
  - Atrial fibrillation [Unknown]
  - Cardiac failure chronic [Unknown]
  - Cardiac amyloidosis [Unknown]
  - Disease progression [Unknown]
  - Arteriosclerosis [Unknown]
  - Carotid arteriosclerosis [Unknown]
  - Dyspnoea [Unknown]
  - Oedema peripheral [Unknown]
  - Spinal stenosis [Unknown]
